FAERS Safety Report 10136344 (Version 1)
Quarter: 2014Q2

REPORT INFORMATION
  Report Type: Spontaneous
  Country: GB (occurrence: GB)
  Receive Date: 20140429
  Receipt Date: 20140429
  Transmission Date: 20141212
  Serious: Yes (Disabling, Other)
  Sender: FDA-Public Use
  Company Number: GB-ELI_LILLY_AND_COMPANY-GB201404005263

PATIENT
  Age: 39 Year
  Sex: Female
  Weight: 72 kg

DRUGS (1)
  1. DULOXETINE HYDROCHLORIDE [Suspect]
     Indication: STRESS URINARY INCONTINENCE
     Dosage: 30 MG, BID
     Route: 048
     Dates: end: 201308

REACTIONS (7)
  - Suicidal ideation [Not Recovered/Not Resolved]
  - Scintillating scotoma [Not Recovered/Not Resolved]
  - Mood swings [Not Recovered/Not Resolved]
  - Vision blurred [Recovered/Resolved]
  - Flushing [Recovered/Resolved with Sequelae]
  - Nausea [Not Recovered/Not Resolved]
  - Withdrawal syndrome [Not Recovered/Not Resolved]
